FAERS Safety Report 6123782-X (Version None)
Quarter: 2009Q1

REPORT INFORMATION
  Report Type: 
  Country: None (occurrence: None)
  Receive Date: 20090317
  Receipt Date: 20090303
  Transmission Date: 20090719
  Serious: Yes (Hospitalization)
  Sender: FDA-Public Use
  Company Number: 005355

PATIENT
  Age: 79 Year
  Sex: Female
  Weight: 55 kg

DRUGS (10)
  1. PLETAL [Suspect]
     Indication: ARTERIOSCLEROSIS OBLITERANS
     Dosage: 100 MG, BID ORAL
     Route: 048
     Dates: start: 20081227, end: 20090101
  2. CARVEDILOL [Concomitant]
  3. BAYASPIRIN (ACETYLSALICYLIC ACID) TABLET [Concomitant]
  4. LASIX SWE (FUROSEMIDE) TABLET [Concomitant]
  5. ALLOPURINOL [Concomitant]
  6. LIPITOR [Concomitant]
  7. NORVASC OD (AMLODIPINE BESILATE) TABLET [Concomitant]
  8. FERROMIA (FERROUS CITRATE) TABLET [Concomitant]
  9. PREMINENT (LOSARTAN POTASSIUM_HYDROCHLOROTHIAZIDE) TABLET [Concomitant]
  10. PLAVIX [Concomitant]

REACTIONS (9)
  - BLOOD CREATINE PHOSPHOKINASE MB INCREASED [None]
  - CARDIAC FAILURE [None]
  - CHEST PAIN [None]
  - CONDITION AGGRAVATED [None]
  - HEART RATE DECREASED [None]
  - PULMONARY CONGESTION [None]
  - RENAL FAILURE ACUTE [None]
  - TACHYCARDIA [None]
  - TROPONIN INCREASED [None]
